FAERS Safety Report 11227947 (Version 1)
Quarter: 2015Q2

REPORT INFORMATION
  Report Type: Spontaneous
  Country: US (occurrence: None)
  Receive Date: 20150629
  Receipt Date: 20150629
  Transmission Date: 20150821
  Serious: Yes (Hospitalization)
  Sender: FDA-Public Use
  Company Number: None

PATIENT
  Age: 75 Year
  Sex: Female
  Weight: 52.4 kg

DRUGS (1)
  1. ENOXAPARIN 40 MG [Suspect]
     Active Substance: ENOXAPARIN
     Indication: HIP ARTHROPLASTY
     Dosage: 1  QD SUBCUTANEOUS
     Route: 058
     Dates: start: 20150613, end: 20150621

REACTIONS (3)
  - Melaena [None]
  - Rectal haemorrhage [None]
  - Haematochezia [None]

NARRATIVE: CASE EVENT DATE: 20150622
